FAERS Safety Report 25002330 (Version 1)
Quarter: 2025Q1

REPORT INFORMATION
  Report Type: Other
  Country: GR (occurrence: GR)
  Receive Date: 20250224
  Receipt Date: 20250224
  Transmission Date: 20250409
  Serious: Yes (Hospitalization, Congenital Anomaly, Other)
  Sender: BIONPHARMA INC.
  Company Number: GR-Bion-014737

PATIENT
  Sex: Female

DRUGS (3)
  1. VALPROIC ACID [Suspect]
     Active Substance: VALPROIC ACID
     Indication: Psychotic disorder
  2. ARIPIPRAZOLE [Concomitant]
     Active Substance: ARIPIPRAZOLE
     Indication: Psychotic disorder
  3. DIAZEPAM [Concomitant]
     Active Substance: DIAZEPAM
     Indication: Psychotic disorder

REACTIONS (12)
  - Foetal exposure during pregnancy [Unknown]
  - Foetal anticonvulsant syndrome [Unknown]
  - Dysmorphism [Unknown]
  - Limb deformity [Unknown]
  - Hypotonia [Unknown]
  - Congenital hypothyroidism [Unknown]
  - Motor developmental delay [Unknown]
  - Neurodevelopmental delay [Unknown]
  - Syndactyly [Unknown]
  - Choroidal coloboma [Unknown]
  - Astigmatism [Unknown]
  - Deafness unilateral [Unknown]
